FAERS Safety Report 4686433-7 (Version None)
Quarter: 2005Q2

REPORT INFORMATION
  Report Type: 
  Country: None (occurrence: None)
  Receive Date: 20050606
  Receipt Date: 20050520
  Transmission Date: 20051028
  Serious: Yes (Hospitalization, Other)
  Sender: FDA-Public Use
  Company Number: CEL-2005-00519-SLO

PATIENT
  Age: 49 Year
  Sex: Male

DRUGS (2)
  1. DIPENTUM [Suspect]
     Dates: start: 20050304, end: 20050305
  2. PENTASA [Suspect]
     Indication: ENTEROCOLITIS HAEMORRHAGIC
     Dosage: 2 G, 1/D
     Dates: end: 20050201

REACTIONS (4)
  - ENTEROCOLITIS HAEMORRHAGIC [None]
  - INFLUENZA [None]
  - PLATELET COUNT INCREASED [None]
  - THROMBOCYTOPENIA [None]
